FAERS Safety Report 5818451-7 (Version None)
Quarter: 2008Q3

REPORT INFORMATION
  Report Type: 
  Country: None (occurrence: None)
  Receive Date: 20080718
  Receipt Date: 20080714
  Transmission Date: 20090109
  Serious: Yes (Other)
  Sender: FDA-Public Use
  Company Number: 2008S1011974

PATIENT
  Age: 37 Year
  Sex: Female

DRUGS (2)
  1. PAROXETINE HCL [Suspect]
     Dosage: 40 MG; ; ORAL
     Route: 048
     Dates: end: 20080513
  2. PRAVASTATIN SODIUM [Suspect]
     Dosage: ; DAILY; ORAL
     Route: 048
     Dates: start: 20080514, end: 20080523

REACTIONS (12)
  - ABASIA [None]
  - ABDOMINAL PAIN UPPER [None]
  - BALANCE DISORDER [None]
  - DIARRHOEA [None]
  - DRUG DISPENSING ERROR [None]
  - FLATULENCE [None]
  - HEADACHE [None]
  - OEDEMA PERIPHERAL [None]
  - PAIN [None]
  - VERTIGO [None]
  - WITHDRAWAL SYNDROME [None]
  - WRONG DRUG ADMINISTERED [None]
